FAERS Safety Report 24120185 (Version 1)
Quarter: 2024Q3

REPORT INFORMATION
  Report Type: Spontaneous
  Country: NL (occurrence: NL)
  Receive Date: 20240722
  Receipt Date: 20240722
  Transmission Date: 20241016
  Serious: Yes (Life-Threatening, Hospitalization)
  Sender: MYLAN
  Company Number: None

PATIENT
  Age: 64 Year
  Sex: Male
  Weight: 87 kg

DRUGS (1)
  1. ROCURONIUM [Suspect]
     Active Substance: ROCURONIUM BROMIDE
     Indication: Muscle relaxant therapy
     Dosage: 1 DOSAGE FORM, ONCE ONLY
     Route: 065
     Dates: start: 20240511, end: 20240511

REACTIONS (2)
  - Chest wall rigidity [Recovered/Resolved]
  - Bronchial obstruction [Recovered/Resolved]
